FAERS Safety Report 5407383-4 (Version None)
Quarter: 2007Q3

REPORT INFORMATION
  Report Type: 
  Country: None (occurrence: None)
  Receive Date: 20070807
  Receipt Date: 20070725
  Transmission Date: 20080115
  Serious: Yes (Hospitalization)
  Sender: FDA-Public Use
  Company Number: HU-ELI_LILLY_AND_COMPANY-HU200702001118

PATIENT
  Age: 59 Year
  Sex: Female
  Weight: 42 kg

DRUGS (8)
  1. GEMZAR [Suspect]
     Indication: NON-SMALL CELL LUNG CANCER
     Dosage: 2000 MG, UNK
     Route: 042
     Dates: start: 20061214
  2. GEMZAR [Suspect]
  3. CISPLATIN [Concomitant]
     Indication: NON-SMALL CELL LUNG CANCER
     Dosage: 60 MG, UNK
     Route: 042
     Dates: start: 20061215
  4. CISPLATIN [Concomitant]
  5. THERAPEUTIC RADIOPHARMACEUTICALS [Concomitant]
     Dosage: 3 GY/DIE (FIVE TREATMENTS)
     Dates: start: 20061215, end: 20061221
  6. BETALOC [Concomitant]
     Dosage: UNK, UNK
  7. NUTRIDRINK [Concomitant]
  8. FAMOTIDINE [Concomitant]

REACTIONS (1)
  - URTICARIA [None]
